FAERS Safety Report 9919114 (Version 1)
Quarter: 2014Q1

REPORT INFORMATION
  Report Type: Spontaneous
  Country: US (occurrence: US)
  Receive Date: 20140224
  Receipt Date: 20140224
  Transmission Date: 20141002
  Serious: No
  Sender: FDA-Public Use
  Company Number: US-PFIZER INC-2014052771

PATIENT
  Sex: Female

DRUGS (1)
  1. ZOLOFT [Suspect]
     Dosage: UNK
     Route: 048

REACTIONS (5)
  - Insomnia [Unknown]
  - Mania [Unknown]
  - Hypersensitivity [Unknown]
  - Speech disorder [Unknown]
  - Iris disorder [Unknown]
